FAERS Safety Report 19616834 (Version 1)
Quarter: 2021Q3

REPORT INFORMATION
  Report Type: Spontaneous
  Country: US (occurrence: US)
  Receive Date: 20210727
  Receipt Date: 20210727
  Transmission Date: 20211014
  Serious: No
  Sender: FDA-Public Use
  Company Number: US-ABBVIE-21K-163-3739139-00

PATIENT
  Sex: Female

DRUGS (2)
  1. SYNTHROID [Suspect]
     Active Substance: LEVOTHYROXINE SODIUM
     Indication: PRODUCT USED FOR UNKNOWN INDICATION
     Route: 048
  2. ARMOUR THYROID [Suspect]
     Active Substance: THYROID, PORCINE
     Indication: THYROID HORMONE REPLACEMENT THERAPY
     Dosage: DAILY
     Route: 048
     Dates: start: 1980

REACTIONS (7)
  - Product quality issue [Not Recovered/Not Resolved]
  - Alopecia [Not Recovered/Not Resolved]
  - Drug hypersensitivity [Unknown]
  - Glycosylated haemoglobin abnormal [Unknown]
  - Arrhythmia [Unknown]
  - Weight gain poor [Not Recovered/Not Resolved]
  - Hunger [Not Recovered/Not Resolved]

NARRATIVE: CASE EVENT DATE: 2017
